FAERS Safety Report 4820894-5 (Version None)
Quarter: 2005Q4

REPORT INFORMATION
  Report Type: 
  Country: None (occurrence: None)
  Receive Date: 20051104
  Receipt Date: 20051104
  Transmission Date: 20060501
  Serious: Yes (Life-Threatening, Hospitalization, Disabling, Other)
  Sender: FDA-Public Use
  Company Number: None

PATIENT
  Age: 21 Year
  Sex: Female
  Weight: 105.2345 kg

DRUGS (2)
  1. ARTANE [Suspect]
     Indication: EMOTIONAL DISORDER
     Dates: start: 20000101
  2. STELAZINE [Suspect]
     Indication: SCHIZOPHRENIA

REACTIONS (12)
  - ASTHMA [None]
  - CONFUSIONAL STATE [None]
  - DIFFICULTY IN WALKING [None]
  - DRUG ABUSER [None]
  - FEELING ABNORMAL [None]
  - HEAD INJURY [None]
  - HEART RATE INCREASED [None]
  - HYPOTONIA [None]
  - LIMB INJURY [None]
  - MYOCARDIAL INFARCTION [None]
  - RESPIRATORY TRACT CONGESTION [None]
  - SCHIZOPHRENIA [None]
